FAERS Safety Report 4768039-4 (Version None)
Quarter: 2005Q3

REPORT INFORMATION
  Report Type: 
  Country: None (occurrence: None)
  Receive Date: 20050913
  Receipt Date: 20050826
  Transmission Date: 20060218
  Serious: Yes (Hospitalization)
  Sender: FDA-Public Use
  Company Number: 2005BI012403

PATIENT
  Age: 51 Year
  Sex: Female
  Weight: 86.637 kg

DRUGS (1)
  1. AVONEX [Suspect]
     Indication: MULTIPLE SCLEROSIS
     Dosage: 30 UG;QW;IM
     Dates: start: 20040101

REACTIONS (3)
  - CARDIAC DISORDER [None]
  - HEART RATE DECREASED [None]
  - MYOCARDIAL INFARCTION [None]
